FAERS Safety Report 5140939-5 (Version None)
Quarter: 2006Q4

REPORT INFORMATION
  Report Type: 
  Country: None (occurrence: None)
  Receive Date: 20061025
  Receipt Date: 20061025
  Transmission Date: 20070319
  Serious: Yes (Hospitalization)
  Sender: FDA-Public Use
  Company Number: None

PATIENT
  Age: 84 Year
  Sex: Male
  Weight: 72.5755 kg

DRUGS (3)
  1. FUROSEMIDE [Suspect]
     Indication: CARDIAC FAILURE CONGESTIVE
     Dosage: 20MG  DAILY
     Dates: start: 20060711, end: 20060921
  2. FUROSEMIDE [Suspect]
     Indication: OEDEMA
     Dosage: 20MG  DAILY
     Dates: start: 20060711, end: 20060921
  3. ENALAPRIL (CHANGED FROM LISINOPRIL) [Suspect]
     Indication: CARDIAC FAILURE CONGESTIVE
     Dosage: 1.25 MG  DAILY
     Dates: start: 20060711

REACTIONS (1)
  - DIZZINESS [None]
